FAERS Safety Report 8505825-9 (Version None)
Quarter: 2012Q3

REPORT INFORMATION
  Report Type: 
  Country: None (occurrence: None)
  Receive Date: 20120712
  Receipt Date: 20120703
  Transmission Date: 20120928
  Serious: Yes (Other)
  Sender: FDA-Public Use
  Company Number: US-ASTRAZENECA-2012SE25092

PATIENT
  Sex: Male

DRUGS (2)
  1. NEXIUM [Suspect]
     Route: 048
  2. PRILOSEC OTC [Suspect]
     Route: 048

REACTIONS (6)
  - INTENTIONAL DRUG MISUSE [None]
  - DYSPEPSIA [None]
  - ABDOMINAL DISCOMFORT [None]
  - COLON CANCER [None]
  - DRUG DOSE OMISSION [None]
  - NAUSEA [None]
